FAERS Safety Report 20819953 (Version 3)
Quarter: 2022Q2

REPORT INFORMATION
  Report Type: Spontaneous
  Country: BR (occurrence: BR)
  Receive Date: 20220512
  Receipt Date: 20220519
  Transmission Date: 20220721
  Serious: Yes (Other)
  Sender: FDA-Public Use
  Company Number: BR-NOVARTISPH-NVSC2022BR108448

PATIENT
  Age: 36 Year
  Sex: Female
  Weight: 58.6 kg

DRUGS (2)
  1. TEGRETOL XR [Suspect]
     Active Substance: CARBAMAZEPINE
     Indication: Epilepsy
     Dosage: 2 DOSAGE FORM, BID (2 IN MORNING, 2 IN EVENING)
     Route: 065
  2. TEGRETOL XR [Suspect]
     Active Substance: CARBAMAZEPINE
     Dosage: UNK, 2 TABLETS EVERY 12 HOURS, START DATE WAS 1996 WHEN I WAS 11 YEARS OLD.
     Route: 048
     Dates: start: 1996

REACTIONS (14)
  - Hair colour changes [Recovering/Resolving]
  - Cataract [Recovering/Resolving]
  - Loss of consciousness [Recovered/Resolved with Sequelae]
  - Seizure [Unknown]
  - Drug dependence [Unknown]
  - Weight decreased [Unknown]
  - Memory impairment [Unknown]
  - Hyperhidrosis [Unknown]
  - Anxiety [Unknown]
  - Ill-defined disorder [Unknown]
  - Speech disorder [Unknown]
  - Cognitive disorder [Unknown]
  - Hypersomnia [Unknown]
  - Product availability issue [Unknown]

NARRATIVE: CASE EVENT DATE: 20211101
